FAERS Safety Report 5116643-6 (Version None)
Quarter: 2006Q3

REPORT INFORMATION
  Report Type: 
  Country: None (occurrence: None)
  Receive Date: 20060928
  Receipt Date: 20060926
  Transmission Date: 20061208
  Serious: Yes (Other)
  Sender: FDA-Public Use
  Company Number: US-GLAXOSMITHKLINE-A0621481A

PATIENT
  Age: 60 Year
  Sex: Male

DRUGS (5)
  1. REQUIP [Suspect]
     Dosage: .5MG VARIABLE DOSE
     Route: 048
  2. SINEMET [Concomitant]
  3. COUMADIN [Concomitant]
  4. METOPROLOL [Concomitant]
  5. CAPTOPRIL [Concomitant]

REACTIONS (6)
  - DROOLING [None]
  - NERVOUSNESS [None]
  - PARKINSONISM [None]
  - SOMNOLENCE [None]
  - TREMOR [None]
  - VOMITING [None]
